FAERS Safety Report 21386601 (Version 7)
Quarter: 2023Q1

REPORT INFORMATION
  Report Type: Spontaneous
  Country: CA (occurrence: CA)
  Receive Date: 20220928
  Receipt Date: 20230206
  Transmission Date: 20230418
  Serious: Yes (Other)
  Sender: FDA-Public Use
  Company Number: CA-PFIZER INC-202201151224

PATIENT
  Age: 50 Year
  Sex: Female

DRUGS (4)
  1. XELJANZ [Suspect]
     Active Substance: TOFACITINIB CITRATE
     Indication: Colitis ulcerative
     Dosage: 10 MG, 2X/DAY. INDUCTION 8 WEEKS
     Route: 048
     Dates: start: 20220919, end: 2022
  2. XELJANZ [Suspect]
     Active Substance: TOFACITINIB CITRATE
     Indication: Crohn^s disease
     Dosage: 5 MG, 2X/DAY, ON HOLD
     Route: 048
     Dates: start: 2022, end: 20220928
  3. XELJANZ [Suspect]
     Active Substance: TOFACITINIB CITRATE
     Dosage: 1 DF
     Route: 048
  4. ABRILADA [Concomitant]
     Active Substance: ADALIMUMAB-AFZB
     Indication: Crohn^s disease
     Dosage: 1 DF, 160 MG ON WEEK 0, 80 MG ON WEEK 2, THEN 40 MG
     Route: 058
     Dates: start: 20230131

REACTIONS (19)
  - Haematochezia [Not Recovered/Not Resolved]
  - Pyoderma [Unknown]
  - Fatigue [Recovering/Resolving]
  - Fall [Unknown]
  - Asthenia [Recovering/Resolving]
  - Colectomy [Unknown]
  - Ileostomy [Unknown]
  - Uveitis [Unknown]
  - Rectal haemorrhage [Unknown]
  - Drug ineffective [Unknown]
  - Weight increased [Unknown]
  - Somnolence [Unknown]
  - Malaise [Not Recovered/Not Resolved]
  - Peripheral swelling [Not Recovered/Not Resolved]
  - Anxiety [Unknown]
  - Anal fistula [Unknown]
  - Psoriasis [Unknown]
  - Anorectal disorder [Unknown]
  - Fistula [Not Recovered/Not Resolved]

NARRATIVE: CASE EVENT DATE: 20220101
